FAERS Safety Report 18801622 (Version 1)
Quarter: 2021Q1

REPORT INFORMATION
  Report Type: Report from Study
  Country: CA (occurrence: CA)
  Receive Date: 20210128
  Receipt Date: 20210128
  Transmission Date: 20210419
  Serious: Yes (Other)
  Sender: FDA-Public Use
  Company Number: CA-KARYOPHARM-2021KPT000085

PATIENT

DRUGS (2)
  1. DOXORUBICIN [Suspect]
     Active Substance: DOXORUBICIN
     Indication: SOFT TISSUE SARCOMA
     Dosage: 75 MG/M2 Q21D
     Route: 042
  2. SELINEXOR [Suspect]
     Active Substance: SELINEXOR
     Indication: SOFT TISSUE SARCOMA
     Dosage: 60 MG, WEEKLY
     Route: 048

REACTIONS (1)
  - Cardiac failure [Unknown]
